FAERS Safety Report 9516334 (Version 2)
Quarter: 2013Q4

REPORT INFORMATION
  Report Type: Spontaneous
  Country: US (occurrence: US)
  Receive Date: 20130911
  Receipt Date: 20131112
  Transmission Date: 20140711
  Serious: Yes (Other)
  Sender: FDA-Public Use
  Company Number: US-ASTRAZENECA-2013SE67125

PATIENT
  Age: 63 Year
  Sex: Female
  Weight: 86.2 kg

DRUGS (21)
  1. SEROQUEL [Suspect]
     Indication: DEPRESSION
     Route: 048
     Dates: start: 2012, end: 201303
  2. SEROQUEL [Suspect]
     Indication: SLEEP DISORDER
     Route: 048
     Dates: start: 2012, end: 201303
  3. SEROQUEL [Suspect]
     Indication: INSOMNIA
     Route: 048
     Dates: start: 2012, end: 201303
  4. AMBIEN [Concomitant]
     Indication: SLEEP DISORDER
     Dates: start: 2012
  5. AMBIEN [Concomitant]
     Indication: SLEEP DISORDER
  6. WELLBUTRIN XL [Concomitant]
     Indication: DEPRESSION
     Dates: start: 2012
  7. WELLBUTRIN XL [Concomitant]
     Indication: DEPRESSION
  8. CELEXA [Concomitant]
  9. ADDERALL [Concomitant]
  10. ADDERALL [Concomitant]
     Dates: start: 201308
  11. XANAX [Concomitant]
     Indication: ANXIETY
  12. KLONOPIN [Concomitant]
     Indication: ANXIETY
     Dates: start: 2011
  13. KLONOPIN [Concomitant]
     Indication: INSOMNIA
     Dates: start: 2011
  14. KLONOPIN [Concomitant]
     Indication: ANXIETY
  15. KLONOPIN [Concomitant]
     Indication: INSOMNIA
  16. VITAMIN D3 [Concomitant]
     Indication: VITAMIN D DEFICIENCY
     Dates: start: 2012
  17. VITAMIN D3 [Concomitant]
     Indication: VITAMIN D DEFICIENCY
     Dosage: 1000 UNIT
  18. BAYER BABY ASPIRIN [Concomitant]
     Dosage: DAILY
  19. KRILL OIL [Concomitant]
     Indication: NUTRITIONAL SUPPLEMENTATION
     Dosage: 150-4
  20. KRILL OIL [Concomitant]
     Indication: NUTRITIONAL SUPPLEMENTATION
     Dosage: 150-4
  21. MULTIVITAMIN [Concomitant]

REACTIONS (17)
  - Cataract [Unknown]
  - Cataract nuclear [Unknown]
  - Glaucomatous optic disc atrophy [Unknown]
  - Vitreous detachment [Unknown]
  - Visual impairment [Unknown]
  - Vitamin D deficiency [Unknown]
  - Presbyopia [Unknown]
  - Hypermetropia [Unknown]
  - Local swelling [Unknown]
  - Nocturia [Unknown]
  - Back pain [Unknown]
  - Anxiety [Unknown]
  - Depression [Unknown]
  - Insomnia [Unknown]
  - Blood triglycerides increased [Unknown]
  - Blood cholesterol increased [Unknown]
  - Asthenia [Unknown]
